FAERS Safety Report 4456129-5 (Version None)
Quarter: 2004Q3

REPORT INFORMATION
  Report Type: 
  Country: None (occurrence: None)
  Receive Date: 20040921
  Receipt Date: 20040909
  Transmission Date: 20050211
  Serious: Yes (Hospitalization, Other)
  Sender: FDA-Public Use
  Company Number: HQ4811624OCT2002

PATIENT
  Age: 50 Year
  Sex: Male

DRUGS (2)
  1. MYLOTARG [Suspect]
     Indication: ACUTE MYELOID LEUKAEMIA
     Dosage: SEE IAMGE
     Route: 042
     Dates: start: 20020723, end: 20020723
  2. MYLOTARG [Suspect]
     Indication: ACUTE MYELOID LEUKAEMIA
     Dosage: SEE IAMGE
     Route: 042
     Dates: start: 20020806, end: 20020806

REACTIONS (1)
  - FEBRILE NEUTROPENIA [None]
